FAERS Safety Report 8103813-8 (Version None)
Quarter: 2012Q1

REPORT INFORMATION
  Report Type: 
  Country: None (occurrence: None)
  Receive Date: 20120201
  Receipt Date: 20120125
  Transmission Date: 20120608
  Serious: Yes (Other)
  Sender: FDA-Public Use
  Company Number: NL-JNJFOC-20120110348

PATIENT
  Sex: Female

DRUGS (2)
  1. XEPLION [Suspect]
     Route: 030
     Dates: start: 20110601
  2. XEPLION [Suspect]
     Indication: PSYCHOTIC DISORDER
     Route: 030
     Dates: start: 20111201

REACTIONS (3)
  - WEIGHT DECREASED [None]
  - PSYCHOTIC DISORDER [None]
  - THYROID FUNCTION TEST ABNORMAL [None]
